FAERS Safety Report 8220696-6 (Version None)
Quarter: 2012Q1

REPORT INFORMATION
  Report Type: 
  Country: None (occurrence: None)
  Receive Date: 20120320
  Receipt Date: 20120308
  Transmission Date: 20120608
  Serious: Yes (Other)
  Sender: FDA-Public Use
  Company Number: TN-SANOFI-AVENTIS-2012SA016528

PATIENT
  Age: 32 Year
  Sex: Male

DRUGS (1)
  1. CEFOTAXIME SODIUM [Suspect]
     Route: 065

REACTIONS (7)
  - EOSINOPHILIA [None]
  - LYMPHOCYTOSIS [None]
  - RASH PRURITIC [None]
  - FACE OEDEMA [None]
  - PYREXIA [None]
  - DRUG RASH WITH EOSINOPHILIA AND SYSTEMIC SYMPTOMS [None]
  - CYTOLYTIC HEPATITIS [None]
